FAERS Safety Report 7376920-5 (Version None)
Quarter: 2011Q1

REPORT INFORMATION
  Report Type: 
  Country: None (occurrence: None)
  Receive Date: 20110328
  Receipt Date: 20110316
  Transmission Date: 20110831
  Serious: Yes (Other)
  Sender: FDA-Public Use
  Company Number: CH-BAYER-2011-023344

PATIENT
  Age: 57 Year
  Sex: Male

DRUGS (1)
  1. AVELOX [Suspect]
     Indication: BRONCHITIS
     Dosage: 400 MG, QD
     Route: 048
     Dates: start: 20110217, end: 20110220

REACTIONS (2)
  - PETECHIAE [None]
  - THROMBOCYTOPENIA [None]
